FAERS Safety Report 10761706 (Version 1)
Quarter: 2015Q1

REPORT INFORMATION
  Report Type: Spontaneous
  Country: US (occurrence: None)
  Receive Date: 20150203
  Receipt Date: 20150203
  Transmission Date: 20150721
  Serious: Yes (Hospitalization, Disabling)
  Sender: FDA-Public Use
  Company Number: None

PATIENT
  Age: 56 Year
  Sex: Male

DRUGS (1)
  1. METHOTREXATE [Suspect]
     Active Substance: METHOTREXATE
     Indication: ACUTE LYMPHOCYTIC LEUKAEMIA RECURRENT
     Dosage: QD X 5D (CYCLE 3)
     Route: 038
     Dates: start: 20141201, end: 20141205

REACTIONS (2)
  - Mental status changes [None]
  - Drug level decreased [None]

NARRATIVE: CASE EVENT DATE: 20141212
